FAERS Safety Report 7275020-2 (Version None)
Quarter: 2011Q1

REPORT INFORMATION
  Report Type: 
  Country: None (occurrence: None)
  Receive Date: 20110204
  Receipt Date: 20110127
  Transmission Date: 20110831
  Serious: Yes (Death, Life-Threatening, Hospitalization)
  Sender: FDA-Public Use
  Company Number: JP-ROCHE-738282

PATIENT
  Sex: Female

DRUGS (1)
  1. TOCILIZUMAB [Suspect]
     Indication: CASTLEMAN'S DISEASE
     Route: 042
     Dates: start: 20100409, end: 20101012

REACTIONS (5)
  - NAUSEA [None]
  - GASTROINTESTINAL PERFORATION [None]
  - DIFFUSE LARGE B-CELL LYMPHOMA STAGE IV [None]
  - ENTERITIS INFECTIOUS [None]
  - ABDOMINAL PAIN [None]
